FAERS Safety Report 17397285 (Version 3)
Quarter: 2020Q2

REPORT INFORMATION
  Report Type: Spontaneous
  Country: BR (occurrence: BR)
  Receive Date: 20200210
  Receipt Date: 20200521
  Transmission Date: 20200713
  Serious: Yes (Other)
  Sender: FDA-Public Use
  Company Number: BR-ROCHE-2546337

PATIENT
  Age: 69 Year
  Sex: Male

DRUGS (12)
  1. OLCADIL [Suspect]
     Active Substance: CLOXAZOLAM
     Indication: HEADACHE
  2. OLCADIL [Suspect]
     Active Substance: CLOXAZOLAM
     Indication: STRESS
  3. RIVOTRIL [Suspect]
     Active Substance: CLONAZEPAM
     Indication: PRODUCT USED FOR UNKNOWN INDICATION
     Route: 065
  4. FRONTAL [Suspect]
     Active Substance: ALPRAZOLAM
     Indication: PRODUCT USED FOR UNKNOWN INDICATION
     Route: 065
  5. ULTIBRO BREEZHALER [Suspect]
     Active Substance: GLYCOPYRRONIUM\INDACATEROL
     Indication: EMPHYSEMA
     Dosage: ONCE A NIGHT
     Route: 055
  6. LEXOTAN [Suspect]
     Active Substance: BROMAZEPAM
     Indication: PRODUCT USED FOR UNKNOWN INDICATION
     Route: 065
  7. SEEBRI BREEZHALER [Suspect]
     Active Substance: GLYCOPYRROLATE
     Indication: CHRONIC OBSTRUCTIVE PULMONARY DISEASE
     Route: 055
  8. OLCADIL [Suspect]
     Active Substance: CLOXAZOLAM
     Indication: EMOTIONAL DISORDER
     Route: 048
  9. PANTOPRAZOLE [Concomitant]
     Active Substance: PANTOPRAZOLE
     Indication: GASTROOESOPHAGEAL REFLUX DISEASE
     Route: 048
  10. LORATADINE. [Suspect]
     Active Substance: LORATADINE
     Indication: PRODUCT USED FOR UNKNOWN INDICATION
     Route: 065
  11. SERETIDE [Suspect]
     Active Substance: FLUTICASONE PROPIONATE\SALMETEROL XINAFOATE
     Indication: EMPHYSEMA
     Route: 065
  12. BUSONID [Concomitant]
     Active Substance: BUDESONIDE
     Indication: NASAL POLYPS
     Route: 055

REACTIONS (25)
  - Chronic obstructive pulmonary disease [Not Recovered/Not Resolved]
  - Asthma [Not Recovered/Not Resolved]
  - Spinal cord compression [Recovering/Resolving]
  - Influenza [Recovering/Resolving]
  - Chronic gastritis [Unknown]
  - Depression [Recovering/Resolving]
  - Emphysema [Not Recovered/Not Resolved]
  - Lung disorder [Unknown]
  - Feeling abnormal [Not Recovered/Not Resolved]
  - Drug dependence [Unknown]
  - Fatigue [Recovering/Resolving]
  - Tachycardia [Recovering/Resolving]
  - Emotional disorder [Not Recovered/Not Resolved]
  - Aortic aneurysm [Not Recovered/Not Resolved]
  - Dyspnoea [Recovering/Resolving]
  - Mitral valve disease [Not Recovered/Not Resolved]
  - Hypertension [Not Recovered/Not Resolved]
  - Rebound effect [Not Recovered/Not Resolved]
  - Drug ineffective [Unknown]
  - Sedation [Recovering/Resolving]
  - Intervertebral disc protrusion [Not Recovered/Not Resolved]
  - Arrhythmia [Unknown]
  - Chest discomfort [Recovering/Resolving]
  - Chest pain [Recovering/Resolving]
  - Pneumonia [Unknown]
